FAERS Safety Report 6999786-1 (Version None)
Quarter: 2010Q3

REPORT INFORMATION
  Report Type: 
  Country: None (occurrence: None)
  Receive Date: 20100920
  Receipt Date: 20100909
  Transmission Date: 20110219
  Serious: Yes (Other)
  Sender: FDA-Public Use
  Company Number: PHFR2010GB03264

PATIENT
  Sex: Male

DRUGS (2)
  1. CLOZARIL [Suspect]
     Indication: SCHIZOPHRENIA
     Dosage: 850 MG, QD
     Route: 048
     Dates: start: 20060717
  2. CLOZARIL [Suspect]
     Dosage: 750 MG, QD
     Route: 048

REACTIONS (9)
  - ANTIPSYCHOTIC DRUG LEVEL INCREASED [None]
  - BLOOD CREATINE PHOSPHOKINASE INCREASED [None]
  - CONFUSIONAL STATE [None]
  - DIZZINESS [None]
  - FALL [None]
  - HYPOPHAGIA [None]
  - MALAISE [None]
  - SALIVARY HYPERSECRETION [None]
  - TREMOR [None]
